FAERS Safety Report 18078675 (Version 1)
Quarter: 2020Q3

REPORT INFORMATION
  Report Type: Spontaneous
  Country: US (occurrence: US)
  Receive Date: 20200728
  Receipt Date: 20200728
  Transmission Date: 20201103
  Serious: Yes (Hospitalization)
  Sender: FDA-Public Use
  Company Number: US-B.I. PHARMACEUTICALS,INC./RIDGEFIELD-2020-US-037385

PATIENT
  Age: 60 Year
  Sex: Female

DRUGS (1)
  1. STIOLTO RESPIMAT [Suspect]
     Active Substance: OLODATEROL HYDROCHLORIDE\TIOTROPIUM BROMIDE MONOHYDRATE
     Indication: CHRONIC OBSTRUCTIVE PULMONARY DISEASE
     Dosage: 2 PUFFS ONCE DAILY
     Route: 065
     Dates: start: 2019

REACTIONS (5)
  - Pneumonia [Recovered/Resolved]
  - Blood glucose decreased [Recovered/Resolved]
  - Asthenia [Recovered/Resolved]
  - COVID-19 [Recovered/Resolved]
  - Cardiac flutter [Not Recovered/Not Resolved]

NARRATIVE: CASE EVENT DATE: 20200430
